FAERS Safety Report 5520612-1 (Version None)
Quarter: 2007Q4

REPORT INFORMATION
  Report Type: 
  Country: None (occurrence: None)
  Receive Date: 20071119
  Receipt Date: 20071025
  Transmission Date: 20080405
  Serious: No
  Sender: FDA-Public Use
  Company Number: JP-PFIZER INC-2007087835

PATIENT
  Sex: Male

DRUGS (5)
  1. CELECOX [Suspect]
     Indication: RHEUMATOID ARTHRITIS
     Dosage: DAILY DOSE:400MG
     Route: 048
     Dates: start: 20070914, end: 20071011
  2. IRSOGLADINE MALEATE [Concomitant]
     Indication: PROPHYLAXIS
     Dosage: DAILY DOSE:4MG
     Route: 048
     Dates: start: 20070914, end: 20071011
  3. KETOPROFEN [Concomitant]
     Indication: PAIN
  4. LOXONIN [Concomitant]
     Indication: PAIN
     Dosage: DAILY DOSE:60MG
     Route: 048
     Dates: start: 20070608
  5. MUCOSTA [Concomitant]
     Indication: PAIN
     Dosage: DAILY DOSE:100MG
     Route: 048
     Dates: start: 20070608

REACTIONS (2)
  - CHEILITIS [None]
  - THIRST [None]
